FAERS Safety Report 12811519 (Version 2)
Quarter: 2016Q4

REPORT INFORMATION
  Report Type: Spontaneous
  Country: US (occurrence: US)
  Receive Date: 20161005
  Receipt Date: 20161010
  Transmission Date: 20170207
  Serious: Yes (Death, Hospitalization)
  Sender: FDA-Public Use
  Company Number: US-BAYER-2016-191293

PATIENT
  Age: 75 Year
  Sex: Female

DRUGS (1)
  1. ACETYLSALICYLIC ACID({=100 MG) [Suspect]
     Active Substance: ASPIRIN
     Indication: ANTIPLATELET THERAPY
     Dosage: 81 MG, UNK
     Route: 048

REACTIONS (13)
  - Brain midline shift [Fatal]
  - Fall [None]
  - Dizziness [Fatal]
  - Cerebral haemorrhage [Fatal]
  - Tachycardia [Fatal]
  - Loss of consciousness [None]
  - Ischaemic stroke [Fatal]
  - Subdural haematoma [Fatal]
  - Urinary incontinence [Fatal]
  - Brain herniation [Fatal]
  - Craniocerebral injury [Not Recovered/Not Resolved]
  - Vomiting [Fatal]
  - Headache [Fatal]
